FAERS Safety Report 7746367-8 (Version None)
Quarter: 2011Q3

REPORT INFORMATION
  Report Type: 
  Country: None (occurrence: None)
  Receive Date: 20110913
  Receipt Date: 20110907
  Transmission Date: 20111222
  Serious: Yes (Hospitalization)
  Sender: FDA-Public Use
  Company Number: RO-ABBOTT-11P-135-0852530-00

PATIENT
  Sex: Male
  Weight: 75 kg

DRUGS (11)
  1. HUMIRA [Suspect]
     Dosage: AFTER WEEK 1
     Route: 058
  2. OMAPRAZOLUM [Concomitant]
     Indication: GASTRODUODENITIS
     Route: 048
     Dates: start: 20110804, end: 20110816
  3. MALOX [Concomitant]
     Indication: GASTRODUODENITIS
     Route: 048
     Dates: start: 20110818, end: 20110821
  4. TENOX [Concomitant]
     Indication: HYPERTENSION
     Route: 048
     Dates: start: 20110501
  5. DIUREX [Concomitant]
     Indication: HYPERTENSION
     Route: 048
     Dates: start: 20110501, end: 20110906
  6. CALCIUM CARBONATE [Concomitant]
     Indication: GASTRODUODENITIS
     Route: 048
     Dates: start: 20110818, end: 20110825
  7. NO-SPA [Concomitant]
     Indication: GASTRODUODENITIS
     Route: 048
     Dates: start: 20110818, end: 20110825
  8. HUMIRA [Suspect]
     Indication: PSORIASIS
     Dosage: WEEK 0
     Route: 058
     Dates: start: 20110804
  9. HUMIRA [Suspect]
     Route: 058
     Dates: end: 20110827
  10. TRIMETAZIDINE [Concomitant]
     Indication: MYOCARDIAL ISCHAEMIA
     Route: 048
     Dates: start: 20110501
  11. DEBRIDAT [Concomitant]
     Indication: GASTRODUODENITIS
     Route: 048
     Dates: start: 20110818, end: 20110825

REACTIONS (1)
  - RETINAL ARTERY OCCLUSION [None]
